FAERS Safety Report 7305197-1 (Version None)
Quarter: 2011Q1

REPORT INFORMATION
  Report Type: 
  Country: None (occurrence: None)
  Receive Date: 20110222
  Receipt Date: 20110215
  Transmission Date: 20110831
  Serious: Yes (Other)
  Sender: FDA-Public Use
  Company Number: US-PFIZER INC-2010173488

PATIENT
  Sex: Female

DRUGS (1)
  1. TIKOSYN [Suspect]
     Indication: ATRIAL FIBRILLATION
     Dosage: 250 MG, Q 12 HRS
     Route: 048
     Dates: start: 20081101

REACTIONS (2)
  - ATRIAL FIBRILLATION [None]
  - GASTRIC BYPASS [None]
